FAERS Safety Report 19722482 (Version 3)
Quarter: 2022Q1

REPORT INFORMATION
  Report Type: Spontaneous
  Country: US (occurrence: US)
  Receive Date: 20210819
  Receipt Date: 20220303
  Transmission Date: 20220423
  Serious: Yes (Other)
  Sender: FDA-Public Use
  Company Number: US-ENDO PHARMACEUTICALS INC-2021-011181

PATIENT
  Age: 85 Year
  Sex: Male
  Weight: 99.773 kg

DRUGS (6)
  1. XIAFLEX [Suspect]
     Active Substance: COLLAGENASE CLOSTRIDIUM HISTOLYTICUM
     Indication: Dupuytren^s contracture
     Dosage: UNK UNKNOWN, SINGLE (TREATMENT ONE, INJECTION ONE)
     Route: 026
     Dates: start: 20210809, end: 20210809
  2. ELIQUIS [Concomitant]
     Active Substance: APIXABAN
     Indication: Anticoagulant therapy
     Dosage: UNK UNKNOWN, BID
     Route: 048
  3. SOTALOL [Concomitant]
     Active Substance: SOTALOL
     Indication: Arrhythmia
     Dosage: 5 MG, BID
     Route: 048
  4. SOTALOL [Concomitant]
     Active Substance: SOTALOL
     Dosage: 80 MG, BID
     Route: 065
  5. OMEPRAZOLE [Concomitant]
     Active Substance: OMEPRAZOLE
     Indication: Product used for unknown indication
     Dosage: 20 MG, OD
     Route: 065
  6. LOVASTATIN [Concomitant]
     Active Substance: LOVASTATIN
     Indication: Product used for unknown indication
     Dosage: 40 MG, QOD
     Route: 065

REACTIONS (6)
  - Hand fracture [Unknown]
  - Tooth disorder [Unknown]
  - Nerve injury [Not Recovered/Not Resolved]
  - Injection site pain [Unknown]
  - Drug ineffective [Unknown]
  - Product communication issue [Unknown]

NARRATIVE: CASE EVENT DATE: 20210809
